FAERS Safety Report 6787253-X (Version None)
Quarter: 2010Q2

REPORT INFORMATION
  Report Type: 
  Country: None (occurrence: None)
  Receive Date: 20100621
  Receipt Date: 20100611
  Transmission Date: 20101027
  Serious: Yes (Other)
  Sender: FDA-Public Use
  Company Number: 2010EU002419

PATIENT
  Age: 8 Year
  Sex: Male

DRUGS (3)
  1. TACROLIMUS [Suspect]
     Indication: DERMATITIS ATOPIC
     Dosage: 0.03 %
     Dates: start: 20090401
  2. PREDNISONE TAB [Concomitant]
  3. CORTICOSTEROID NOS (CORTICOSTEROID NOS) [Concomitant]

REACTIONS (3)
  - CONDITION AGGRAVATED [None]
  - DERMATITIS ATOPIC [None]
  - LYMPH NODE PALPABLE [None]
